FAERS Safety Report 21860506 (Version 1)
Quarter: 2023Q1

REPORT INFORMATION
  Report Type: Spontaneous
  Country: US (occurrence: None)
  Receive Date: 20230113
  Receipt Date: 20230113
  Transmission Date: 20230417
  Serious: Yes (Other)
  Sender: FDA-Public Use
  Company Number: None

PATIENT
  Age: 67 Year
  Sex: Female
  Weight: 60.75 kg

DRUGS (5)
  1. CIBINQO [Suspect]
     Active Substance: ABROCITINIB
     Indication: Eczema
     Dosage: OTHER QUANTITY : 1 TABLET(S);?
     Route: 048
     Dates: start: 20221122, end: 20221220
  2. Pantroprazole [Concomitant]
  3. LEXAPRO [Concomitant]
     Active Substance: ESCITALOPRAM OXALATE
  4. CALCIUM [Concomitant]
     Active Substance: CALCIUM
  5. VITAMIN C [Concomitant]
     Active Substance: ASCORBIC ACID

REACTIONS (8)
  - Flatulence [None]
  - Chest pain [None]
  - Neck pain [None]
  - Pain in jaw [None]
  - Abdominal pain [None]
  - Diarrhoea [None]
  - Abdominal pain lower [None]
  - Gastrointestinal pain [None]

NARRATIVE: CASE EVENT DATE: 20221220
